FAERS Safety Report 18021497 (Version 3)
Quarter: 2021Q1

REPORT INFORMATION
  Report Type: Report from Study
  Country: None (occurrence: US)
  Receive Date: 20200715
  Receipt Date: 20210101
  Transmission Date: 20210419
  Serious: Yes (Other)
  Sender: FDA-Public Use
  Company Number: US-ABBVIE-20K-163-3354272-00

PATIENT
  Sex: Male
  Weight: 118.04 kg

DRUGS (19)
  1. LEVOTHYROXINE. [Concomitant]
     Active Substance: LEVOTHYROXINE
     Indication: THYROID DISORDER
  2. IBUPROFEN. [Concomitant]
     Active Substance: IBUPROFEN
     Indication: PRODUCT USED FOR UNKNOWN INDICATION
  3. OMEPRAZOL [Concomitant]
     Active Substance: OMEPRAZOLE
     Indication: GASTROOESOPHAGEAL REFLUX DISEASE
  4. DILTIAZEM. [Concomitant]
     Active Substance: DILTIAZEM
     Indication: CARDIAC DISORDER
  5. VENCLEXTA [Suspect]
     Active Substance: VENETOCLAX
     Dosage: DOSE WAS CURRENTLY 200 MG ON MONDAY/WED/FRI/SAT AND 100 MG ON THE OTHER DAYS.
     Route: 048
     Dates: start: 202004, end: 202009
  6. FLECAINIDE [Concomitant]
     Active Substance: FLECAINIDE
     Indication: ATRIAL FIBRILLATION
  7. FOLIC ACID. [Concomitant]
     Active Substance: FOLIC ACID
     Indication: ANAEMIA
  8. FLUCONAZOLE. [Concomitant]
     Active Substance: FLUCONAZOLE
     Indication: ANTIVIRAL TREATMENT
  9. VITAMIN C [Concomitant]
     Active Substance: ASCORBIC ACID
     Indication: PRODUCT USED FOR UNKNOWN INDICATION
  10. TYLENOL [Concomitant]
     Active Substance: ACETAMINOPHEN
     Indication: PRODUCT USED FOR UNKNOWN INDICATION
  11. LISINOPRIL. [Concomitant]
     Active Substance: LISINOPRIL
     Indication: HYPERTENSION
  12. VENCLEXTA [Suspect]
     Active Substance: VENETOCLAX
     Indication: ACUTE MYELOID LEUKAEMIA
     Route: 048
     Dates: start: 202003, end: 2020
  13. DECITABINE. [Concomitant]
     Active Substance: DECITABINE
     Indication: ACUTE MYELOID LEUKAEMIA
  14. ACYCLOVIR. [Concomitant]
     Active Substance: ACYCLOVIR
     Indication: ANTIVIRAL TREATMENT
  15. VENCLEXTA [Suspect]
     Active Substance: VENETOCLAX
     Route: 048
     Dates: start: 202011, end: 202011
  16. FLUOXETINE [Concomitant]
     Active Substance: FLUOXETINE HYDROCHLORIDE
     Indication: DEPRESSION
  17. VENCLEXTA [Suspect]
     Active Substance: VENETOCLAX
     Route: 048
     Dates: start: 20200401, end: 20200413
  18. SULFISOXAZOLE [Concomitant]
     Active Substance: SULFISOXAZOLE
     Indication: ANTIBIOTIC THERAPY
  19. VICODIN [Concomitant]
     Active Substance: ACETAMINOPHEN\HYDROCODONE BITARTRATE
     Indication: PAIN

REACTIONS (27)
  - Blood count abnormal [Recovering/Resolving]
  - Oxygen saturation decreased [Unknown]
  - Insomnia [Recovering/Resolving]
  - Nausea [Unknown]
  - Anaemia [Unknown]
  - Oropharyngeal pain [Recovered/Resolved]
  - Headache [Not Recovered/Not Resolved]
  - Pruritus [Not Recovered/Not Resolved]
  - Illness [Unknown]
  - Platelet count decreased [Recovering/Resolving]
  - Unevaluable event [Unknown]
  - Faeces discoloured [Recovering/Resolving]
  - Haemorrhoids [Recovered/Resolved]
  - Feeling abnormal [Recovering/Resolving]
  - Constipation [Recovering/Resolving]
  - Stomatitis [Recovered/Resolved]
  - Hypophagia [Recovered/Resolved]
  - Fluid retention [Recovered/Resolved]
  - Haemoglobin decreased [Recovering/Resolving]
  - Asthenia [Not Recovered/Not Resolved]
  - Blister [Recovered/Resolved]
  - Dizziness [Not Recovered/Not Resolved]
  - Malaise [Recovering/Resolving]
  - Tongue ulceration [Recovered/Resolved]
  - Fatigue [Not Recovered/Not Resolved]
  - Asthenia [Unknown]
  - Balance disorder [Recovered/Resolved]

NARRATIVE: CASE EVENT DATE: 2020
